FAERS Safety Report 24671223 (Version 4)
Quarter: 2025Q3

REPORT INFORMATION
  Report Type: Report from Study
  Country: EU (occurrence: EU)
  Receive Date: 20241127
  Receipt Date: 20250710
  Transmission Date: 20251021
  Serious: Yes (Hospitalization)
  Sender: EMD SERONO INC
  Company Number: EU-Merck Healthcare KGaA-2024061773

PATIENT
  Age: 31 Year
  Sex: Female

DRUGS (11)
  1. CLADRIBINE [Suspect]
     Active Substance: CLADRIBINE
     Indication: Relapsing-remitting multiple sclerosis
     Dates: start: 20190618, end: 20190622
  2. CLADRIBINE [Suspect]
     Active Substance: CLADRIBINE
     Dates: start: 20190715, end: 20190719
  3. CLADRIBINE [Suspect]
     Active Substance: CLADRIBINE
     Dates: start: 20200622, end: 20200626
  4. CLADRIBINE [Suspect]
     Active Substance: CLADRIBINE
     Dates: start: 20200720, end: 20200724
  5. COMIRNATY [Concomitant]
     Indication: COVID-19 immunisation
     Dates: start: 20210531, end: 20210531
  6. COMIRNATY [Concomitant]
     Dates: start: 20211116, end: 20211116
  7. COMIRNATY [Concomitant]
     Dates: start: 20221027, end: 20221027
  8. VAXZEVRIA [Concomitant]
     Active Substance: AZD-1222
     Indication: COVID-19 immunisation
     Dates: start: 20210308, end: 20210308
  9. CHOLECALCIFEROL [Concomitant]
     Active Substance: CHOLECALCIFEROL
     Indication: Vitamin D decreased
     Dosage: ONGOING
     Dates: start: 20200407
  10. AMOXICILLIN [Concomitant]
     Active Substance: AMOXICILLIN
     Indication: Tonsillitis
     Dates: start: 20231226, end: 20240102
  11. TYSABRI [Concomitant]
     Active Substance: NATALIZUMAB
     Indication: Multiple sclerosis

REACTIONS (3)
  - Abortion spontaneous [Unknown]
  - Pregnancy [Recovered/Resolved]
  - Maternal exposure before pregnancy [Recovered/Resolved]

NARRATIVE: CASE EVENT DATE: 20240916
